FAERS Safety Report 12807237 (Version 6)
Quarter: 2018Q2

REPORT INFORMATION
  Report Type: Spontaneous
  Country: US (occurrence: US)
  Receive Date: 20161004
  Receipt Date: 20180507
  Transmission Date: 20180711
  Serious: Yes (Other)
  Sender: FDA-Public Use
  Company Number: US-PFIZER INC-2016446100

PATIENT
  Age: 64 Year
  Sex: Female
  Weight: 66 kg

DRUGS (11)
  1. IBRANCE [Suspect]
     Active Substance: PALBOCICLIB
     Dosage: 125 MG, CYCLIC (ONCE DAILY WITH FOOD FOR 21 DAYS, THEN 7 DAYS OFF)
     Route: 048
     Dates: start: 201709
  2. LETROZOLE. [Concomitant]
     Active Substance: LETROZOLE
     Dosage: 2.5 MG, UNK
  3. LISINOPRIL. [Concomitant]
     Active Substance: LISINOPRIL
     Dosage: 10 MG, UNK
  4. IBRANCE [Suspect]
     Active Substance: PALBOCICLIB
     Indication: BREAST CANCER FEMALE
     Dosage: 125 MG, ONCE A DAY
     Route: 048
  5. LETROZOLE. [Concomitant]
     Active Substance: LETROZOLE
     Indication: HORMONE THERAPY
     Dosage: 10 MG, ONCE A DAY
  6. GABAPENTIN. [Concomitant]
     Active Substance: GABAPENTIN
     Dosage: 300 MG, UNK
  7. LISINOPRIL. [Concomitant]
     Active Substance: LISINOPRIL
     Dosage: 5 MG, UNK
  8. NYSTATIN. [Concomitant]
     Active Substance: NYSTATIN
     Dosage: UNK (100000 UNIT/M)
  9. IBRANCE [Suspect]
     Active Substance: PALBOCICLIB
     Dosage: 125 MG, CYCLIC (ONCE DAILY WITH FOOD FOR 21 DAYS, THEN 7 DAYS OFF)
     Route: 048
     Dates: start: 20170910
  10. IBRANCE [Suspect]
     Active Substance: PALBOCICLIB
     Dosage: 125 MG, CYCLIC[TAKE ONE CAPSULE BY MOUTH ONCE DAILY WITH FOOD FOR 21 DAYS, THEN 7 DAYS OFF]
     Route: 048
     Dates: start: 20170908
  11. METFORMIN HCL [Concomitant]
     Active Substance: METFORMIN HYDROCHLORIDE
     Dosage: 1000 MG, UNK (TB2)

REACTIONS (8)
  - Diabetes mellitus [Unknown]
  - Skin discolouration [Recovering/Resolving]
  - Pain in extremity [Recovering/Resolving]
  - Insomnia [Not Recovered/Not Resolved]
  - Vulvovaginal pruritus [Not Recovered/Not Resolved]
  - Feeling abnormal [Not Recovered/Not Resolved]
  - Speech disorder [Not Recovered/Not Resolved]
  - Hot flush [Not Recovered/Not Resolved]

NARRATIVE: CASE EVENT DATE: 20160911
